FAERS Safety Report 20206569 (Version 1)
Quarter: 2021Q4

REPORT INFORMATION
  Report Type: Spontaneous
  Country: US (occurrence: None)
  Receive Date: 20211218
  Receipt Date: 20211218
  Transmission Date: 20220303
  Serious: Yes (Life-Threatening, Hospitalization, Disabling)
  Sender: FDA-Public Use
  Company Number: None

PATIENT
  Age: 48 Year
  Sex: Male
  Weight: 74.25 kg

DRUGS (2)
  1. XANAX [Suspect]
     Active Substance: ALPRAZOLAM
     Indication: Anxiety
     Dosage: FREQUENCY : 3 TIMES A DAY;?
     Route: 048
     Dates: start: 20200318, end: 20200412
  2. XANAX [Suspect]
     Active Substance: ALPRAZOLAM
     Indication: Post-traumatic stress disorder

REACTIONS (3)
  - Product communication issue [None]
  - Headache [None]
  - Near death experience [None]

NARRATIVE: CASE EVENT DATE: 20200419
